FAERS Safety Report 8608561-3 (Version None)
Quarter: 2012Q3

REPORT INFORMATION
  Report Type: 
  Country: None (occurrence: None)
  Receive Date: 20120821
  Receipt Date: 20120816
  Transmission Date: 20120928
  Serious: Yes (Other)
  Sender: FDA-Public Use
  Company Number: US-PFIZER INC-2012202037

PATIENT
  Age: 76 Year
  Sex: Female
  Weight: 83.447 kg

DRUGS (9)
  1. LIPITOR [Suspect]
     Dosage: 40 MG, DAILY
     Dates: start: 20120809
  2. ACETAMINOPHEN AND OXYCODONE HCL [Suspect]
     Indication: PAIN
     Dosage: 5 MG/325 MG, ONE TO TWO TABLETS EVERY 4-6 HOURS
     Route: 048
     Dates: start: 20120801
  3. ASPIRIN [Concomitant]
     Dosage: 325 MG, UNK
     Dates: start: 20120809
  4. LIPITOR [Suspect]
     Indication: BLOOD CHOLESTEROL INCREASED
     Dosage: 40 MG, DAILY
     Dates: start: 20120501, end: 20120801
  5. ASPIRIN [Concomitant]
     Dosage: 81 MG, UNK
  6. FISH OIL [Concomitant]
     Dosage: UNK
  7. VITAMIN TAB [Concomitant]
     Dosage: UNK
  8. FISH OIL [Concomitant]
     Dosage: UNK
     Dates: start: 20120809
  9. VITAMIN TAB [Concomitant]
     Dosage: UNK
     Dates: start: 20120809

REACTIONS (4)
  - NAUSEA [None]
  - FATIGUE [None]
  - ROTATOR CUFF REPAIR [None]
  - PAIN [None]
